FAERS Safety Report 4732591-5 (Version None)
Quarter: 2005Q3

REPORT INFORMATION
  Report Type: 
  Country: None (occurrence: None)
  Receive Date: 20050803
  Receipt Date: 20050722
  Transmission Date: 20060218
  Serious: Yes (Hospitalization)
  Sender: FDA-Public Use
  Company Number: US-JNJFOC-20050704847

PATIENT
  Sex: Female
  Weight: 78.47 kg

DRUGS (15)
  1. INFLIXIMAB [Suspect]
     Indication: RHEUMATOID ARTHRITIS
     Route: 042
  2. RANITIDINE [Concomitant]
  3. GLIPIZIDE [Concomitant]
  4. FOLIC ACID [Concomitant]
  5. FUROSEMIDE [Concomitant]
  6. IRON [Concomitant]
  7. DIGOXIN [Concomitant]
  8. CELEBREX [Concomitant]
  9. ISOSORBIDE [Concomitant]
  10. COUMADIN [Concomitant]
  11. SPIRONOLACTONE [Concomitant]
  12. SYNTHROID [Concomitant]
  13. METHOTREXATE [Concomitant]
  14. NIASPAN [Concomitant]
     Dosage: 500 MG AT BEDTIME
  15. ASPIRIN [Concomitant]

REACTIONS (3)
  - POSTMENOPAUSAL HAEMORRHAGE [None]
  - UTERINE POLYP [None]
  - VULVAL CANCER [None]
